FAERS Safety Report 15402545 (Version 2)
Quarter: 2018Q4

REPORT INFORMATION
  Report Type: Spontaneous
  Country: HU (occurrence: HU)
  Receive Date: 20180919
  Receipt Date: 20181119
  Transmission Date: 20190204
  Serious: Yes (Other)
  Sender: FDA-Public Use
  Company Number: HU-SA-2018SA232579

PATIENT
  Age: 24 Year
  Sex: Female

DRUGS (19)
  1. MIDAZOLAM [Suspect]
     Active Substance: MIDAZOLAM HYDROCHLORIDE
     Dosage: 7.5 MG
     Route: 048
  2. PANTOPRAZOLE [Suspect]
     Active Substance: PANTOPRAZOLE
     Dosage: 40 MG
     Route: 042
  3. ISOFLURANE. [Suspect]
     Active Substance: ISOFLURANE
     Dosage: 0.5 TO 1.0%
  4. PIPECURONIUM BROMIDE. [Suspect]
     Active Substance: PIPECURONIUM BROMIDE
     Dosage: 4 MG
     Route: 040
  5. DIGOXIN. [Suspect]
     Active Substance: DIGOXIN
  6. MIDAZOLAM [Suspect]
     Active Substance: MIDAZOLAM HYDROCHLORIDE
     Dosage: 5 MG
  7. SUFENTANIL [Suspect]
     Active Substance: SUFENTANIL
     Dosage: 10 UG
  8. HEPARIN SODIUM. [Suspect]
     Active Substance: HEPARIN SODIUM
     Dosage: 20000 IU
  9. PROTAMINE SULPHATE [Suspect]
     Active Substance: PROTAMINE SULFATE
     Dosage: 200 MG
  10. HEPARIN SODIUM. [Suspect]
     Active Substance: HEPARIN SODIUM
     Dosage: 10000 IU
  11. MIDAZOLAM [Suspect]
     Active Substance: MIDAZOLAM HYDROCHLORIDE
     Dosage: 2 UG/ML
  12. PANTOPRAZOLE [Suspect]
     Active Substance: PANTOPRAZOLE
     Dosage: 40 MG
     Route: 048
  13. PROPOFOL. [Suspect]
     Active Substance: PROPOFOL
     Dosage: 2 UG/ML
  14. METOPROLOL SALT NOT SPECIFIED [Suspect]
     Active Substance: METOPROLOL
     Indication: SINUS TACHYCARDIA
  15. EPHEDRINE. [Suspect]
     Active Substance: EPHEDRINE
     Dosage: 5 MG
     Route: 040
  16. ENOXAPARIN SODIUM. [Suspect]
     Active Substance: ENOXAPARIN SODIUM
  17. PENAMECILLIN [Suspect]
     Active Substance: PENAMECILLIN
  18. SEVOFLURANE. [Suspect]
     Active Substance: SEVOFLURANE
     Dosage: 1.5 TO 2.0%
  19. AMPICILLIN [Suspect]
     Active Substance: AMPICILLIN
     Dosage: 2 G, Q4H

REACTIONS (14)
  - Fluid overload [Unknown]
  - Hypokinesia [Unknown]
  - Anaemia [Unknown]
  - Sinus tachycardia [Unknown]
  - Cardiac failure [Unknown]
  - Ejection fraction decreased [Recovered/Resolved]
  - Dyspnoea [Unknown]
  - Exposure during pregnancy [Unknown]
  - Hyperthyroidism [Unknown]
  - Thyroid cyst [Unknown]
  - Cardiac valve abscess [Unknown]
  - Orthopnoea [Unknown]
  - Cardiac valve vegetation [Unknown]
  - Alpha haemolytic streptococcal infection [Unknown]
